FAERS Safety Report 24878685 (Version 1)
Quarter: 2025Q1

REPORT INFORMATION
  Report Type: Spontaneous
  Country: US (occurrence: None)
  Receive Date: 20250123
  Receipt Date: 20250123
  Transmission Date: 20250409
  Serious: Yes (Other)
  Sender: ALLEGIS PHARMACEUTICALS
  Company Number: US-Allegis Pharmaceuticals, LLC-APL202501-000026

PATIENT
  Age: 71 Year
  Sex: Male

DRUGS (14)
  1. AZATHIOPRINE [Suspect]
     Active Substance: AZATHIOPRINE
     Indication: Granulomatosis with polyangiitis
  2. METHYLPREDNISOLONE [Suspect]
     Active Substance: METHYLPREDNISOLONE
     Indication: Immunosuppressant drug therapy
  3. TACROLIMUS [Suspect]
     Active Substance: TACROLIMUS
     Indication: Immunosuppressant drug therapy
     Dosage: DAYS POST TRANSPLANT: 25
  4. TACROLIMUS [Suspect]
     Active Substance: TACROLIMUS
     Dosage: DAYS POST TRANSPLANT: 4
  5. TACROLIMUS [Suspect]
     Active Substance: TACROLIMUS
     Dosage: DAYS POST TRANSPLANT: 73
  6. TACROLIMUS [Suspect]
     Active Substance: TACROLIMUS
     Dosage: DAYS POST TRANSPLANT: 73
  7. TACROLIMUS [Suspect]
     Active Substance: TACROLIMUS
     Dosage: DAYS POST TRANSPLANT: 25
  8. TACROLIMUS [Suspect]
     Active Substance: TACROLIMUS
     Dosage: DAYS POST TRANSPLANT: 4
  9. TACROLIMUS [Suspect]
     Active Substance: TACROLIMUS
     Dosage: DAYS POST TRANSPLANT: 80
  10. TACROLIMUS [Suspect]
     Active Substance: TACROLIMUS
     Dosage: DAYS POST TRANSPLANT: 80
  11. MYCOPHENOLATE MOFETIL [Suspect]
     Active Substance: MYCOPHENOLATE MOFETIL
     Indication: Immunosuppressant drug therapy
     Dosage: TROUGH GOAL 8E10 NG/ML
  12. PREDNISONE [Suspect]
     Active Substance: PREDNISONE
     Indication: Immunosuppressant drug therapy
  13. VALGANCICLOVIR [Concomitant]
     Active Substance: VALGANCICLOVIR
     Indication: Infection prophylaxis
  14. SULFAMETHOXAZOLE\TRIMETHOPRIM [Concomitant]
     Active Substance: SULFAMETHOXAZOLE\TRIMETHOPRIM
     Indication: Immunosuppressant drug therapy

REACTIONS (1)
  - Cytomegalovirus viraemia [Recovering/Resolving]
